FAERS Safety Report 17249515 (Version 2)
Quarter: 2020Q1

REPORT INFORMATION
  Report Type: Spontaneous
  Country: GB (occurrence: GB)
  Receive Date: 20200108
  Receipt Date: 20200110
  Transmission Date: 20200409
  Serious: Yes (Hospitalization, Other)
  Sender: FDA-Public Use
  Company Number: GB-009507513-2001GBR002332

PATIENT
  Sex: Male

DRUGS (3)
  1. REZOLSTA [Suspect]
     Active Substance: COBICISTAT\DARUNAVIR ETHANOLATE
     Dosage: 800/150MG
  2. ISENTRESS [Suspect]
     Active Substance: RALTEGRAVIR POTASSIUM
     Dosage: 400MG
  3. REZOLSTA [Suspect]
     Active Substance: COBICISTAT\DARUNAVIR ETHANOLATE
     Dosage: 800/150MG

REACTIONS (1)
  - Lower respiratory tract infection [Unknown]
